FAERS Safety Report 9780838 (Version 1)
Quarter: 2013Q4

REPORT INFORMATION
  Report Type: Report from Study
  Country: AR (occurrence: AR)
  Receive Date: 20131224
  Receipt Date: 20131224
  Transmission Date: 20140711
  Serious: Yes (Death, Hospitalization)
  Sender: FDA-Public Use
  Company Number: PHHY2013AR150137

PATIENT
  Age: 81 Year
  Sex: Male

DRUGS (1)
  1. ONBREZ [Suspect]
     Dosage: 150 UG, PER DAY
     Route: 055

REACTIONS (6)
  - Infarction [Fatal]
  - Dizziness [Fatal]
  - Hyperhidrosis [Fatal]
  - Chest pain [Fatal]
  - Urinary retention [Unknown]
  - Urinary tract infection [Unknown]
